FAERS Safety Report 12478154 (Version 12)
Quarter: 2017Q3

REPORT INFORMATION
  Report Type: Report from Study
  Country: None (occurrence: NL)
  Receive Date: 20160617
  Receipt Date: 20170814
  Transmission Date: 20171127
  Serious: Yes (Hospitalization)
  Sender: FDA-Public Use
  Company Number: NL-ABBVIE-16P-114-1636909-00

PATIENT
  Age: 71 Year
  Sex: Female
  Weight: 56 kg

DRUGS (13)
  1. DUODOPA [Suspect]
     Active Substance: CARBIDOPA\LEVODOPA
     Indication: PARKINSON^S DISEASE
     Dosage: MD: 12, CD: 4.7, ED: 4
     Route: 050
     Dates: start: 20160510, end: 2016
  2. DUODOPA [Suspect]
     Active Substance: CARBIDOPA\LEVODOPA
     Dosage: CONTINUOUS DOSE: 3.2
     Route: 050
     Dates: start: 2016, end: 2016
  3. DUODOPA [Suspect]
     Active Substance: CARBIDOPA\LEVODOPA
     Dosage: CONTINUOUS DOSE: 3.4
     Route: 050
     Dates: start: 2016
  4. ALPRAZOLAM. [Concomitant]
     Active Substance: ALPRAZOLAM
     Indication: PRODUCT USED FOR UNKNOWN INDICATION
     Dates: end: 201609
  5. DUODOPA [Suspect]
     Active Substance: CARBIDOPA\LEVODOPA
     Dosage: CONTINUOUS DOSE: 3.7
     Route: 050
     Dates: start: 2016, end: 2016
  6. PRAMIPEXOL [Suspect]
     Active Substance: PRAMIPEXOLE
     Indication: PRODUCT USED FOR UNKNOWN INDICATION
     Dosage: CONTINUOUS DOSE: 3.0ML
     Route: 065
     Dates: start: 2016
  7. AN 250 SINEMET CR [Concomitant]
     Indication: PRODUCT USED FOR UNKNOWN INDICATION
  8. PRAMIPEXOL [Suspect]
     Active Substance: PRAMIPEXOLE
     Dosage: CONTINUOUS DOSE: 3.0ML
     Route: 065
     Dates: start: 2016
  9. HYDROCHLOROTHIAZIDE. [Concomitant]
     Active Substance: HYDROCHLOROTHIAZIDE
     Indication: PRODUCT USED FOR UNKNOWN INDICATION
  10. METOPROLOL. [Concomitant]
     Active Substance: METOPROLOL
     Indication: PRODUCT USED FOR UNKNOWN INDICATION
  11. VALSARTAN/HYDROCHLOROTHIAZIDE [Concomitant]
     Active Substance: HYDROCHLOROTHIAZIDE\VALSARTAN
     Indication: PRODUCT USED FOR UNKNOWN INDICATION
  12. MADOPAR [Concomitant]
     Active Substance: BENSERAZIDE HYDROCHLORIDE\LEVODOPA
     Indication: PRODUCT USED FOR UNKNOWN INDICATION
  13. DUODOPA [Suspect]
     Active Substance: CARBIDOPA\LEVODOPA
     Dosage: CONTINUOUS DOSE REDUCED WITH 0.3 ML TO 4.1 ML
     Route: 050
     Dates: start: 2016, end: 2016

REACTIONS (22)
  - Regurgitation [Recovering/Resolving]
  - Fatigue [Not Recovered/Not Resolved]
  - Drug level decreased [Not Recovered/Not Resolved]
  - Stoma site erythema [Not Recovered/Not Resolved]
  - Musculoskeletal pain [Not Recovered/Not Resolved]
  - Fall [Recovered/Resolved]
  - Hallucination [Recovering/Resolving]
  - On and off phenomenon [Not Recovered/Not Resolved]
  - Dyspnoea [Not Recovered/Not Resolved]
  - Gastrooesophageal reflux disease [Not Recovered/Not Resolved]
  - Fibroma [Not Recovered/Not Resolved]
  - Fall [Recovered/Resolved]
  - Hyperkinesia [Not Recovered/Not Resolved]
  - Stress [Unknown]
  - Drug effect incomplete [Unknown]
  - Balance disorder [Recovering/Resolving]
  - Fall [Recovering/Resolving]
  - Dyskinesia [Not Recovered/Not Resolved]
  - Dizziness [Recovering/Resolving]
  - Initial insomnia [Not Recovered/Not Resolved]
  - Fluid retention [Not Recovered/Not Resolved]
  - Hypotension [Not Recovered/Not Resolved]

NARRATIVE: CASE EVENT DATE: 2016
